FAERS Safety Report 24375385 (Version 2)
Quarter: 2025Q3

REPORT INFORMATION
  Report Type: Report from Study
  Country: US (occurrence: US)
  Receive Date: 20240928
  Receipt Date: 20250924
  Transmission Date: 20251020
  Serious: Yes (Hospitalization)
  Sender: ABBVIE
  Company Number: US-ABBVIE-5937646

PATIENT
  Sex: Male

DRUGS (1)
  1. VENCLEXTA [Suspect]
     Active Substance: VENETOCLAX
     Indication: Acute myeloid leukaemia
     Dosage: 3 VENCLEXTA OF 100 MG ONCE DAILY
     Route: 048
     Dates: start: 202301

REACTIONS (3)
  - Laboratory test abnormal [Unknown]
  - Chest pain [Recovered/Resolved]
  - Dyspnoea [Unknown]
